FAERS Safety Report 10034905 (Version 3)
Quarter: 2014Q2

REPORT INFORMATION
  Report Type: Spontaneous
  Country: JP (occurrence: None)
  Receive Date: 20140321
  Receipt Date: 20140421
  Transmission Date: 20141212
  Serious: Yes (Disabling)
  Sender: FDA-Public Use
  Company Number: SP07578

PATIENT
  Age: 74 Year
  Sex: Female
  Weight: 42 kg

DRUGS (5)
  1. MOVIPREP [Suspect]
     Indication: BOWEL PREPARATION
     Route: 048
     Dates: start: 20140218, end: 20140218
  2. SINGULAIR [Concomitant]
  3. EPINASTINE [Concomitant]
  4. QVAR [Concomitant]
  5. SEREVENT [Concomitant]

REACTIONS (7)
  - Hemiparesis [None]
  - Neurologic neglect syndrome [None]
  - Altered state of consciousness [None]
  - Cerebral infarction [None]
  - Embolic stroke [None]
  - Dehydration [None]
  - Atrial fibrillation [None]
